FAERS Safety Report 10242168 (Version 1)
Quarter: 2014Q1

REPORT INFORMATION
  Report Type: Spontaneous
  Country: None (occurrence: None)
  Receive Date: 20140306
  Receipt Date: 20140306
  Transmission Date: 20141002
  Serious: Yes (Hospitalization)
  Sender: FDA-Public Use
  Company Number: 163-21880-13114497

PATIENT
  Age: 68 Year
  Sex: Male
  Weight: 81.6 kg

DRUGS (12)
  1. REVLIMID (LENALIDOMIDE) (25 MILLIGRAM, CAPSULES) [Suspect]
     Indication: PLASMA CELL MYELOMA
     Dosage: 25 MG, 21 IN 28 D, PO
     Route: 048
     Dates: start: 201310
  2. PERCOCET(OXYCOCET) [Concomitant]
  3. MORPHINE-NS [Concomitant]
  4. DEXAMETHASONE [Concomitant]
  5. LOTREL [Concomitant]
  6. ZOMETA (ZOLEDRONIC ACID) [Concomitant]
  7. ASPIRINE (ACETYLSALICYLIC ACID) [Concomitant]
  8. TYLENOL EXTRA STRENGTH (PARACETAMOL) [Concomitant]
  9. MULTIVITAMIN [Concomitant]
  10. FISH OIL [Concomitant]
  11. VITAMIN B12 (CYANOCOBALAMIN) [Concomitant]
  12. MAGNESIUM [Concomitant]

REACTIONS (2)
  - Plasma cell myeloma [None]
  - Arthralgia [None]
